FAERS Safety Report 5414847-6 (Version None)
Quarter: 2007Q3

REPORT INFORMATION
  Report Type: 
  Country: None (occurrence: None)
  Receive Date: 20070815
  Receipt Date: 20070810
  Transmission Date: 20080115
  Serious: Yes (Other)
  Sender: FDA-Public Use
  Company Number: PHNR2007AU01511

PATIENT
  Age: 63 Year
  Sex: Female

DRUGS (4)
  1. VOLTAREN [Suspect]
  2. VALIUM [Concomitant]
     Dates: start: 20070809
  3. FOSAMAX [Concomitant]
     Dosage: ONCE WEEKLY
  4. VOLTAREN [Suspect]
     Indication: ARTHRITIS
     Dosage: 100 MG, PRN
     Dates: start: 20030101

REACTIONS (6)
  - ANAL HAEMORRHAGE [None]
  - COLONOSCOPY [None]
  - GASTROINTESTINAL INFLAMMATION [None]
  - OEDEMA PERIPHERAL [None]
  - OSTEOARTHRITIS [None]
  - PAIN OF SKIN [None]
